FAERS Safety Report 8165378-4 (Version None)
Quarter: 2012Q1

REPORT INFORMATION
  Report Type: 
  Country: None (occurrence: None)
  Receive Date: 20120222
  Receipt Date: 20120222
  Transmission Date: 20120608
  Serious: No
  Sender: FDA-Public Use
  Company Number: None

PATIENT
  Age: 88 Year
  Sex: Female

DRUGS (1)
  1. AMOXICILLIN [Suspect]
     Dates: start: 20100719, end: 20100726

REACTIONS (7)
  - PRURITUS [None]
  - LIVER DISORDER [None]
  - HYPONATRAEMIA [None]
  - GALLBLADDER DISORDER [None]
  - HEPATITIS CHOLESTATIC [None]
  - JAUNDICE [None]
  - RASH [None]
